FAERS Safety Report 8085331-9 (Version None)
Quarter: 2012Q1

REPORT INFORMATION
  Report Type: 
  Country: None (occurrence: None)
  Receive Date: 20120128
  Receipt Date: 20110606
  Transmission Date: 20120608
  Serious: No
  Sender: FDA-Public Use
  Company Number: US-ABBOTT-09P-163-0561083-00

PATIENT
  Sex: Female
  Weight: 66.738 kg

DRUGS (22)
  1. NASACORT [Concomitant]
     Indication: SEASONAL ALLERGY
     Route: 045
  2. ACTOS [Concomitant]
     Indication: DIABETES MELLITUS
  3. FOLIC ACID [Concomitant]
     Indication: VITAMIN SUPPLEMENTATION
     Route: 048
  4. ZOCOR [Concomitant]
     Indication: BLOOD CHOLESTEROL
     Route: 048
  5. PROPOXYPHENE NAPSYLATE [Concomitant]
     Indication: PAIN
     Route: 048
  6. FISH OIL [Concomitant]
     Indication: PRODUCT USED FOR UNKNOWN INDICATION
  7. KLONOPIN [Concomitant]
     Indication: INSOMNIA
  8. ACTONEL [Concomitant]
     Indication: OSTEOPOROSIS
     Route: 048
  9. CALCIUM WITH D [Concomitant]
     Indication: MINERAL SUPPLEMENTATION
     Route: 048
  10. LORATADINE [Concomitant]
     Indication: SEASONAL ALLERGY
     Route: 048
  11. HUMIRA [Suspect]
     Route: 058
     Dates: start: 20070101
  12. IBUPROFEN (ADVIL) [Concomitant]
     Indication: PAIN
     Route: 048
  13. HUMIRA [Suspect]
     Indication: RHEUMATOID ARTHRITIS
     Route: 058
     Dates: start: 20060601, end: 20070101
  14. EFFEXOR XR [Concomitant]
     Indication: FIBROMYALGIA
     Route: 048
  15. METHOTREXATE [Concomitant]
     Indication: RHEUMATOID ARTHRITIS
  16. LIPITOR [Concomitant]
     Indication: BLOOD CHOLESTEROL
  17. PLAQUENIL [Concomitant]
     Indication: RHEUMATOID ARTHRITIS
  18. TEMAZEPAM [Concomitant]
     Indication: INSOMNIA
  19. EFFEXOR [Concomitant]
     Indication: FIBROMYALGIA
  20. SEROQUEL [Concomitant]
     Indication: FIBROMYALGIA
     Route: 048
  21. VITAMIN D [Concomitant]
     Indication: PRODUCT USED FOR UNKNOWN INDICATION
  22. LEXAPRO [Concomitant]
     Indication: FIBROMYALGIA

REACTIONS (3)
  - INJECTION SITE PAIN [None]
  - ARTHRALGIA [None]
  - PAIN [None]
